FAERS Safety Report 7338419-1 (Version None)
Quarter: 2011Q1

REPORT INFORMATION
  Report Type: 
  Country: None (occurrence: None)
  Receive Date: 20110308
  Receipt Date: 20110226
  Transmission Date: 20110831
  Serious: Yes (Hospitalization)
  Sender: FDA-Public Use
  Company Number: CA-JNJFOC-20110300998

PATIENT
  Sex: Male
  Weight: 96.2 kg

DRUGS (8)
  1. LYRICA [Concomitant]
     Route: 065
  2. FENTANYL [Concomitant]
     Route: 065
  3. OXYCONTIN [Concomitant]
     Route: 048
  4. K- LYTE [Concomitant]
     Route: 065
  5. FOSAMAX [Concomitant]
     Route: 065
  6. REMICADE [Suspect]
     Indication: CROHN'S DISEASE
     Route: 042
  7. NORTRIPTYLINE [Concomitant]
     Route: 065
  8. PANTOLOC [Concomitant]
     Route: 065

REACTIONS (1)
  - MYOCARDIAL INFARCTION [None]
